FAERS Safety Report 8523682-1 (Version None)
Quarter: 2012Q3

REPORT INFORMATION
  Report Type: 
  Country: None (occurrence: None)
  Receive Date: 20120720
  Receipt Date: 20120717
  Transmission Date: 20120928
  Serious: Yes (Hospitalization)
  Sender: FDA-Public Use
  Company Number: IT-PFIZER INC-2012173046

PATIENT
  Age: 25 Year
  Sex: Female

DRUGS (2)
  1. REMICADE [Suspect]
     Indication: IMMUNOSUPPRESSION
     Dosage: 300 MG, CYCLIC
     Route: 042
     Dates: start: 20100510, end: 20120606
  2. MEDROL [Suspect]
     Indication: IMMUNOSUPPRESSION
     Dosage: 4 MG, 1X/DAY
     Route: 048
     Dates: start: 20080101, end: 20120606

REACTIONS (2)
  - ABDOMINAL PAIN [None]
  - PYREXIA [None]
